FAERS Safety Report 9174811 (Version 1)
Quarter: 2013Q1

REPORT INFORMATION
  Report Type: Spontaneous
  Country: IT (occurrence: None)
  Receive Date: 20130318
  Receipt Date: 20130318
  Transmission Date: 20140127
  Serious: No
  Sender: FDA-Public Use
  Company Number: 1303ITA005363

PATIENT
  Age: 40 Year
  Sex: Female

DRUGS (2)
  1. ISOCEF [Suspect]
     Route: 048
     Dates: start: 20130215, end: 20130217
  2. INDOXEN [Suspect]
     Route: 048
     Dates: start: 20130215, end: 20130217

REACTIONS (2)
  - Pruritus [None]
  - Rash [None]
